FAERS Safety Report 16762977 (Version 1)
Quarter: 2019Q3

REPORT INFORMATION
  Report Type: Spontaneous
  Country: DE (occurrence: DE)
  Receive Date: 20190902
  Receipt Date: 20190902
  Transmission Date: 20191005
  Serious: Yes (Other)
  Sender: FDA-Public Use
  Company Number: DE-ROCHE-2390222

PATIENT
  Age: 66 Year
  Sex: Female

DRUGS (12)
  1. PALBOCICLIB [Suspect]
     Active Substance: PALBOCICLIB
     Indication: BREAST CANCER METASTATIC
     Dosage: UNK
     Route: 065
     Dates: start: 201704
  2. ZOMETA [Suspect]
     Active Substance: ZOLEDRONIC ACID
     Dosage: UNK
     Route: 065
     Dates: start: 200204, end: 201312
  3. THYMUS EXTRACT [Concomitant]
     Indication: BREAST CANCER METASTATIC
     Dosage: UNK
     Route: 065
  4. FASLODEX [Suspect]
     Active Substance: FULVESTRANT
     Indication: BREAST CANCER METASTATIC
     Dosage: UNK
     Route: 065
     Dates: start: 201704
  5. ERIBULIN [Suspect]
     Active Substance: ERIBULIN
     Indication: BREAST CANCER METASTATIC
     Dosage: UNK
     Route: 065
     Dates: start: 201803
  6. AROMASIN [Suspect]
     Active Substance: EXEMESTANE
     Indication: BREAST CANCER METASTATIC
     Dosage: UNK
     Route: 065
     Dates: start: 200204
  7. CAPECITABINE. [Suspect]
     Active Substance: CAPECITABINE
     Indication: BREAST CANCER METASTATIC
     Dosage: UNK
     Route: 048
  8. BEVACIZUMAB. [Suspect]
     Active Substance: BEVACIZUMAB
     Indication: BREAST CANCER METASTATIC
     Dosage: UNK
     Route: 065
  9. ZOLADEX [Suspect]
     Active Substance: GOSERELIN ACETATE
     Indication: BREAST CANCER METASTATIC
     Dosage: UNK
     Route: 065
  10. ZOMETA [Suspect]
     Active Substance: ZOLEDRONIC ACID
     Indication: BREAST CANCER METASTATIC
     Dosage: UNK
     Route: 065
     Dates: start: 200504
  11. TAMOXIFEN [Suspect]
     Active Substance: TAMOXIFEN
     Indication: BREAST CANCER METASTATIC
     Dosage: 20 MG, UNK
     Route: 065
  12. SELEN [SELENIUM] [Concomitant]
     Indication: BREAST CANCER METASTATIC
     Dosage: UNK
     Route: 065

REACTIONS (7)
  - Metastases to liver [Unknown]
  - Pathological fracture [Unknown]
  - Osteonecrosis of jaw [Unknown]
  - Paraplegia [Unknown]
  - Metastases to bone [Unknown]
  - Hypertension [Unknown]
  - Metastases to pleura [Unknown]

NARRATIVE: CASE EVENT DATE: 200204
